FAERS Safety Report 18920168 (Version 8)
Quarter: 2024Q1

REPORT INFORMATION
  Report Type: Other
  Country: HR (occurrence: None)
  Receive Date: 20210222
  Receipt Date: 20240117
  Transmission Date: 20240410
  Serious: No
  Sender: FDA-Public Use
  Company Number: HR-ROCHE-2770997

PATIENT
  Age: 66 Year
  Sex: Female

DRUGS (15)
  1. ATEZOLIZUMAB [Suspect]
     Active Substance: ATEZOLIZUMAB
     Indication: Non-small cell lung cancer metastatic
     Dosage: NEXT DOSE: 11/JAN/2021, 01/FEB/2021 AND 01/MAR/2021?MOST RECENT DOSE OF ATEZOLIZUMAB PRIOR TO ONSET
     Route: 041
     Dates: start: 20201123
  2. MISAR (CROATIA) [Concomitant]
  3. ACLIDINIUM BROMIDE\FORMOTEROL FUMARATE [Concomitant]
     Active Substance: ACLIDINIUM BROMIDE\FORMOTEROL FUMARATE
  4. ACETAMINOPHEN\TRAMADOL HYDROCHLORIDE [Concomitant]
     Active Substance: ACETAMINOPHEN\TRAMADOL HYDROCHLORIDE
  5. MAXITROL [Concomitant]
     Active Substance: DEXAMETHASONE\NEOMYCIN SULFATE\POLYMYXIN B SULFATE
     Dosage: 5X
     Dates: start: 20201214, end: 20201224
  6. MAXITROL [Concomitant]
     Active Substance: DEXAMETHASONE\NEOMYCIN SULFATE\POLYMYXIN B SULFATE
     Dates: start: 20201214, end: 20201224
  7. TOBREX [Concomitant]
     Active Substance: TOBRAMYCIN
     Dosage: 2X
     Dates: start: 20210218, end: 20210222
  8. CISPLATIN [Concomitant]
     Active Substance: CISPLATIN
     Indication: Neoplasm malignant
  9. PEMETREXED [Concomitant]
     Active Substance: PEMETREXED
     Indication: Neoplasm malignant
  10. MOXIFLOXACIN HYDROCHLORIDE [Concomitant]
     Active Substance: MOXIFLOXACIN HYDROCHLORIDE\MOXIFLOXACIN HYDROCHLORIDE MONOHYDRATE
     Dosage: 3X
     Dates: start: 20210218, end: 20210222
  11. GELCLAIR (CROATIA) [Concomitant]
     Dates: start: 20210412, end: 20210503
  12. ZOLPIDEM TARTRATE [Concomitant]
     Active Substance: ZOLPIDEM TARTRATE
     Indication: Sleep disorder
  13. ROSIX (CROATIA) [Concomitant]
  14. ALBUTEROL [Concomitant]
     Active Substance: ALBUTEROL
  15. FOLACIN [Concomitant]

REACTIONS (1)
  - Sialoadenitis [Recovered/Resolved]

NARRATIVE: CASE EVENT DATE: 20201221
